FAERS Safety Report 14238553 (Version 4)
Quarter: 2018Q2

REPORT INFORMATION
  Report Type: Spontaneous
  Country: US (occurrence: US)
  Receive Date: 20171130
  Receipt Date: 20180528
  Transmission Date: 20180711
  Serious: Yes (Congenital Anomaly, Other)
  Sender: FDA-Public Use
  Company Number: PHEH2017US038320

PATIENT
  Sex: Female

DRUGS (2)
  1. ZOFRAN [Suspect]
     Active Substance: ONDANSETRON HYDROCHLORIDE
     Indication: FOETAL EXPOSURE DURING PREGNANCY
     Route: 064
  2. ZOFRAN [Suspect]
     Active Substance: ONDANSETRON HYDROCHLORIDE
     Indication: FOETAL EXPOSURE DURING PREGNANCY
     Route: 064

REACTIONS (26)
  - Costochondritis [Unknown]
  - Heart disease congenital [Unknown]
  - Injury [Unknown]
  - Pulmonary valve stenosis congenital [Unknown]
  - Right ventricular hypertrophy [Unknown]
  - Congenital aortic valve incompetence [Unknown]
  - Adrenogenital syndrome [Unknown]
  - Congenital tricuspid valve incompetence [Unknown]
  - Right ventricular dilatation [Unknown]
  - Sepsis neonatal [Unknown]
  - Atrial septal defect [Unknown]
  - Mitral valve prolapse [Unknown]
  - Premature baby [Unknown]
  - Left-to-right cardiac shunt [Unknown]
  - Neonatal respiratory distress [Unknown]
  - Road traffic accident [Unknown]
  - Headache [Unknown]
  - Right atrial dilatation [Unknown]
  - Right-to-left cardiac shunt [Unknown]
  - Pyrexia [Unknown]
  - Patent ductus arteriosus [Unknown]
  - Respiratory tract infection [Unknown]
  - Foetal exposure during pregnancy [Unknown]
  - Cardiac murmur [Unknown]
  - Pharyngitis [Unknown]
  - Dizziness [Unknown]
